FAERS Safety Report 9880395 (Version 1)
Quarter: 2014Q1

REPORT INFORMATION
  Report Type: Spontaneous
  Country: US (occurrence: None)
  Receive Date: 20140206
  Receipt Date: 20140206
  Transmission Date: 20141002
  Serious: Yes (Life-Threatening, Hospitalization)
  Sender: FDA-Public Use
  Company Number: None

PATIENT
  Age: 67 Year
  Sex: Male
  Weight: 72.58 kg

DRUGS (19)
  1. VANCOMYCIN [Suspect]
     Indication: STAPHYLOCOCCAL INFECTION
     Route: 042
     Dates: start: 20130907, end: 20130915
  2. VANCOMYCIN [Suspect]
     Indication: LOCALISED INFECTION
     Route: 042
     Dates: start: 20130907, end: 20130915
  3. DOCUSATE (COLACE) [Concomitant]
  4. ENOXAPARIN (LOVENOX) [Concomitant]
  5. ALBUTEROL [Concomitant]
  6. AMLODIPINE [Concomitant]
  7. ASCORBIC ACID [Concomitant]
  8. CALCIUM CARBONATE [Concomitant]
  9. EPOETIN ALFA [Concomitant]
  10. FENTANYL [Concomitant]
  11. FERROUS SULFATE [Concomitant]
  12. FINASTERIDE [Concomitant]
  13. FLUTICASONE-SALMETEROL [Concomitant]
  14. FUROSEMIDE [Concomitant]
  15. GABAPENTIN [Concomitant]
  16. LIDOCAINE [Concomitant]
  17. LOVASTATIN [Concomitant]
  18. MIRTAZAPINE [Suspect]
  19. MULTIVITAMIN [Concomitant]

REACTIONS (17)
  - Foot deformity [None]
  - Anaemia [None]
  - Asthma [None]
  - Arteriosclerosis [None]
  - Testicular atrophy [None]
  - Benign prostatic hyperplasia [None]
  - Intervertebral disc disorder [None]
  - Myelopathy [None]
  - Pain [None]
  - Depression [None]
  - Gastrooesophageal reflux disease [None]
  - Hyperlipidaemia [None]
  - Lumbar radiculopathy [None]
  - Osteomyelitis [None]
  - Nephrolithiasis [None]
  - Varicose vein [None]
  - Cervical spinal stenosis [None]
